FAERS Safety Report 9069487 (Version 1)
Quarter: 2013Q1

REPORT INFORMATION
  Report Type: Report from Study
  Country: US (occurrence: US)
  Receive Date: 20130131
  Receipt Date: 20130131
  Transmission Date: 20140127
  Serious: No
  Sender: FDA-Public Use
  Company Number: US-ABBOTT-12P-163-0989071-00

PATIENT
  Age: 63 Year
  Sex: Female

DRUGS (17)
  1. HUMIRA [Suspect]
     Indication: PSORIATIC ARTHROPATHY
     Route: 058
     Dates: start: 20120913
  2. DIOVAN [Concomitant]
     Indication: HYPERTENSION
  3. NORVASC [Concomitant]
     Indication: HYPERTENSION
     Dosage: DAILY
     Route: 048
  4. PROZAC [Concomitant]
     Indication: DEPRESSION
  5. PROZAC [Concomitant]
     Indication: ANXIETY
  6. WELLBUTRIN [Concomitant]
     Indication: DEPRESSION
     Dosage: DAILY
     Route: 048
  7. WELLBUTRIN [Concomitant]
     Indication: ANXIETY
  8. PLAVIX [Concomitant]
     Indication: BLOOD CHOLESTEROL INCREASED
  9. CRESTOR [Concomitant]
     Indication: BLOOD CHOLESTEROL INCREASED
     Dosage: DAILY
     Route: 048
  10. ASA [Concomitant]
     Indication: PROPHYLAXIS
     Dosage: DAILY
     Route: 048
  11. OXYCODONE [Concomitant]
     Indication: PAIN
     Route: 048
  12. XANAX [Concomitant]
     Indication: ANXIETY
     Dosage: 0.5-1MG
  13. PREDNISONE [Concomitant]
     Indication: PRODUCT USED FOR UNKNOWN INDICATION
  14. DOXYCYCLINE HYCLATE [Concomitant]
     Indication: PRODUCT USED FOR UNKNOWN INDICATION
  15. CIPROFLOXACIN ER [Concomitant]
     Indication: PRODUCT USED FOR UNKNOWN INDICATION
  16. IBUPROFEN [Concomitant]
     Indication: PRODUCT USED FOR UNKNOWN INDICATION
     Dosage: CAPLET
  17. BACTRIM DS [Concomitant]
     Indication: PRODUCT USED FOR UNKNOWN INDICATION

REACTIONS (4)
  - Injection site pain [Recovered/Resolved]
  - Injection site bruising [Unknown]
  - Injection site erythema [Unknown]
  - Injection site pain [Unknown]
